FAERS Safety Report 18876438 (Version 1)
Quarter: 2021Q1

REPORT INFORMATION
  Report Type: Other
  Country: JP (occurrence: JP)
  Receive Date: 20210211
  Receipt Date: 20210211
  Transmission Date: 20210420
  Serious: Yes (Hospitalization)
  Sender: FDA-Public Use
  Company Number: JP-ORCHID HEALTHCARE-2106612

PATIENT
  Age: 73 Year
  Sex: Male
  Weight: 91.9 kg

DRUGS (14)
  1. MAGNESIUM OXIDE. [Concomitant]
     Active Substance: MAGNESIUM OXIDE
     Route: 048
  2. DEXAMETHASONE. [Concomitant]
     Active Substance: DEXAMETHASONE
     Route: 042
  3. AMLODIPINE BESYLATE. [Suspect]
     Active Substance: AMLODIPINE BESYLATE
     Indication: HYPERTENSION
     Route: 048
  4. INVESTIGATIONAL DRUG (ANTIEPIDERMAL?GROWTH FACTOR RECEPTOR MONOCLONAL? [Concomitant]
     Route: 042
  5. CISPLATIN. [Concomitant]
     Active Substance: CISPLATIN
     Route: 065
  6. GEMCITABINE. [Concomitant]
     Active Substance: GEMCITABINE
     Route: 065
  7. DEXAMETHASONE. [Concomitant]
     Active Substance: DEXAMETHASONE
     Route: 048
  8. APREPITANT. [Interacting]
     Active Substance: APREPITANT
     Route: 048
  9. RANITIDINE. [Concomitant]
     Active Substance: RANITIDINE
     Route: 048
  10. PALONOSETRON. [Concomitant]
     Active Substance: PALONOSETRON HYDROCHLORIDE
     Route: 042
  11. ASPIRIN. [Concomitant]
     Active Substance: ASPIRIN
     Route: 048
  12. SENNOSIDES. [Concomitant]
     Active Substance: SENNOSIDES
     Route: 048
  13. CANDESARTAN. [Concomitant]
     Active Substance: CANDESARTAN
     Route: 065
  14. ATORVASTATIN [Concomitant]
     Active Substance: ATORVASTATIN
     Route: 065

REACTIONS (2)
  - Drug interaction [Unknown]
  - Atrioventricular block second degree [Recovered/Resolved]
